FAERS Safety Report 5117914-X (Version None)
Quarter: 2006Q3

REPORT INFORMATION
  Report Type: 
  Country: None (occurrence: None)
  Receive Date: 20060925
  Receipt Date: 20060913
  Transmission Date: 20061208
  Serious: Yes (Death, Hospitalization)
  Sender: FDA-Public Use
  Company Number: 229843

PATIENT
  Sex: Female
  Weight: 65 kg

DRUGS (6)
  1. MABTHERA (RITUXIMAB) CONC FOR SOLUTION FOR INFUSION [Suspect]
     Indication: LYMPHOMA
     Dosage: 645 MG, INTRAVENOUS
     Route: 042
     Dates: start: 20060621, end: 20060817
  2. CYCLOPHOSPHAMIDE [Suspect]
     Indication: LYMPHOMA
     Dosage: 1287.5 MG, INTRAVENOUS
     Route: 042
     Dates: start: 20060622, end: 20060803
  3. DOXORUBICIN(DOXORUBICIN/DOXORUBICIN HYDROCHLORIDE) [Suspect]
     Indication: LYMPHOMA
     Dosage: 86.5 MG, INTRAVENOUS
     Route: 042
     Dates: start: 20060622, end: 20060803
  4. VINCRISTINE [Suspect]
     Indication: LYMPHOMA
     Dosage: 2 MG, IONTOPHORESIS
     Route: 044
     Dates: start: 20060622, end: 20060803
  5. PREDNISONE TAB [Suspect]
     Indication: LYMPHOMA
     Dosage: 100 MEQ, ORAL
     Route: 048
     Dates: start: 20060622, end: 20060817
  6. PANTOPRAZOLE SODIUM [Concomitant]

REACTIONS (6)
  - CANDIDIASIS [None]
  - CONDITION AGGRAVATED [None]
  - HAEMATOCRIT DECREASED [None]
  - HAEMOGLOBIN DECREASED [None]
  - MUCOSAL INFLAMMATION [None]
  - ORAL INTAKE REDUCED [None]
